FAERS Safety Report 9331445 (Version 1)
Quarter: 2013Q2

REPORT INFORMATION
  Report Type: Spontaneous
  Country: US (occurrence: US)
  Receive Date: 20130605
  Receipt Date: 20130605
  Transmission Date: 20140414
  Serious: Yes (Other)
  Sender: FDA-Public Use
  Company Number: US-ELI_LILLY_AND_COMPANY-US_0502111624

PATIENT
  Age: 69 Year
  Sex: Female
  Weight: 81.82 kg

DRUGS (11)
  1. HUMALOG [Suspect]
     Indication: DIABETES MELLITUS
     Dosage: 18 U, DAILY (1/D)
     Route: 058
     Dates: start: 2001
  2. HUMALOG [Suspect]
     Dosage: UNK
  3. HUMULIN [Suspect]
     Indication: DIABETES MELLITUS
     Dosage: 28 U, DAILY (1/D)
     Route: 058
     Dates: start: 2001
  4. HUMULIN [Suspect]
     Dosage: UNK
  5. HUMULIN [Suspect]
     Indication: DIABETES MELLITUS
     Dosage: UNK, UNKNOWN
     Dates: end: 2001
  6. INSULIN [Suspect]
     Indication: DIABETES MELLITUS
     Dosage: UNK, UNKNOWN
  7. NEURONTIN [Concomitant]
     Indication: NEUROPATHY PERIPHERAL
     Dosage: 400 MG, EACH EVENING
  8. LEVOXYL [Concomitant]
     Indication: HYPOTHYROIDISM
     Dosage: UNK, UNKNOWN
  9. GLUCERNA [Concomitant]
     Dosage: UNK, UNKNOWN
  10. INSULIN ASPART [Concomitant]
     Dosage: UNK, UNKNOWN
  11. LEVEMIR [Concomitant]

REACTIONS (23)
  - Carotid artery occlusion [Unknown]
  - Retinal haemorrhage [Unknown]
  - Paraesthesia [Not Recovered/Not Resolved]
  - Weight increased [Unknown]
  - Injection site pain [Unknown]
  - Neuropathy peripheral [Not Recovered/Not Resolved]
  - Blood potassium increased [Not Recovered/Not Resolved]
  - Carpal tunnel syndrome [Not Recovered/Not Resolved]
  - Hypothyroidism [Not Recovered/Not Resolved]
  - Injection site haemorrhage [Unknown]
  - Dry skin [Unknown]
  - Pain in extremity [Not Recovered/Not Resolved]
  - Local swelling [Unknown]
  - Arthralgia [Not Recovered/Not Resolved]
  - Arthritis [Not Recovered/Not Resolved]
  - Hypoaesthesia [Not Recovered/Not Resolved]
  - Nervousness [Unknown]
  - Hunger [Unknown]
  - Blood glucose increased [Unknown]
  - Stress [Not Recovered/Not Resolved]
  - Injection site pain [Unknown]
  - Injection site haemorrhage [Unknown]
  - Blood glucose increased [Unknown]
